FAERS Safety Report 4605809-7 (Version None)
Quarter: 2005Q1

REPORT INFORMATION
  Report Type: 
  Country: None (occurrence: None)
  Receive Date: 20050311
  Receipt Date: 20050304
  Transmission Date: 20050727
  Serious: Yes (Hospitalization)
  Sender: FDA-Public Use
  Company Number: US-BRISTOL-MYERS SQUIBB COMPANY-12885992

PATIENT
  Age: 38 Year
  Sex: Male
  Weight: 102 kg

DRUGS (5)
  1. CETUXIMAB [Suspect]
     Indication: COLON CANCER STAGE III
     Dosage: 1ST AND MOST RECENT CETUXIMAB INFUSION 23-FEB-2005 (400 MG/M2 IV OVER 2 HOURS ON DAY 1).
     Route: 042
     Dates: start: 20050223, end: 20050223
  2. LEUCOVORIN CALCIUM [Suspect]
     Indication: COLON CANCER STAGE III
     Dosage: 1ST + MOST RECENT LEUCOVORIN INFUSION ADMINISTERED 23-FEB-2005(400 MG/M2 IV OVER 120 MINUTES DAY 1).
     Route: 042
     Dates: start: 20050223, end: 20050223
  3. FLUOROURACIL [Suspect]
     Indication: COLON CANCER STAGE III
     Dosage: 1ST INFUSION (400 MG/M2 IV PUSH DAY 1) ON 23-FEB-2005; 2400 MG/M2 CONTINUOUS IV OVER 46-48 HOURS.
     Route: 042
     Dates: start: 20050225, end: 20050225
  4. IRINOTECAN HCL [Suspect]
     Indication: COLON CANCER STAGE III
     Dosage: 1ST AND MOST RECENT IRINOTECAN INFUSION 23-FEB-2005 (180 MG/M2 IV OVER 120 MINUTES ON DAY 1).
     Route: 042
     Dates: start: 20050223, end: 20050223
  5. OXALIPLATIN [Suspect]
     Indication: COLON CANCER STAGE III
     Dosage: 1ST OXALIPLATIN INFUSION ADMINISTERED 23-FEB-2005 (85 MG/M2 IV OVER 120 MINUTES ON DAY 1).
     Route: 042

REACTIONS (7)
  - ANGINA PECTORIS [None]
  - BODY TEMPERATURE INCREASED [None]
  - CREATINE PHOSPHOKINASE DECREASED [None]
  - DYSPNOEA [None]
  - ECHOCARDIOGRAM ABNORMAL [None]
  - TROPONIN I INCREASED [None]
  - VENTRICULAR DYSFUNCTION [None]
